FAERS Safety Report 5426916-5 (Version None)
Quarter: 2007Q3

REPORT INFORMATION
  Report Type: 
  Country: None (occurrence: None)
  Receive Date: 20070827
  Receipt Date: 20070817
  Transmission Date: 20080115
  Serious: Yes (Other)
  Sender: FDA-Public Use
  Company Number: US-PFIZER INC-2007069291

PATIENT
  Sex: Male
  Weight: 86 kg

DRUGS (2)
  1. LYRICA [Suspect]
     Indication: HERPES ZOSTER
     Dates: start: 20070101, end: 20070801
  2. CELEBREX [Suspect]
     Indication: ARTHRITIS

REACTIONS (7)
  - DIARRHOEA HAEMORRHAGIC [None]
  - EATING DISORDER [None]
  - FAECES DISCOLOURED [None]
  - HAEMATEMESIS [None]
  - MUCOSAL INFLAMMATION [None]
  - MUCOSAL ULCERATION [None]
  - NAUSEA [None]
